FAERS Safety Report 7849906-1 (Version None)
Quarter: 2011Q4

REPORT INFORMATION
  Report Type: 
  Country: None (occurrence: None)
  Receive Date: 20111021
  Receipt Date: 20111013
  Transmission Date: 20120403
  Serious: Yes (Hospitalization)
  Sender: FDA-Public Use
  Company Number: AUR-APL-2011-05467

PATIENT
  Sex: Male

DRUGS (2)
  1. LISINOPRIL [Suspect]
     Indication: PRODUCT USED FOR UNKNOWN INDICATION
     Dosage: ORAL
     Route: 048
  2. JANUVIA (SITALGIPTIN PHOSPHATE) [Concomitant]

REACTIONS (3)
  - CONFUSIONAL STATE [None]
  - NIPPLE PAIN [None]
  - CHEST PAIN [None]
